FAERS Safety Report 7198558-5 (Version None)
Quarter: 2010Q4

REPORT INFORMATION
  Report Type: 
  Country: None (occurrence: None)
  Receive Date: 20101227
  Receipt Date: 20101217
  Transmission Date: 20110411
  Serious: Yes (Other)
  Sender: FDA-Public Use
  Company Number: US-ASTRAZENECA-2010SE50271

PATIENT
  Age: 70 Year
  Sex: Female

DRUGS (27)
  1. SYMBICORT [Suspect]
     Indication: ASTHMA
     Dosage: 160/4.5 UNKNOWN FREQUENCY
     Route: 055
  2. ADVAIR DISKUS 100/50 [Concomitant]
     Dosage: 500-50 MCG ONE PUFF TWO TIMES A DAY
     Route: 048
  3. NASONEX [Concomitant]
     Dosage: 50 MCG/ACT TWO PUFFS EACH NOSTRIL DAILY
  4. VANIQA [Concomitant]
     Dosage: 13.9 PERCENT APPLY TO AFFECTED AREA TWO TIMES A DAY
  5. ASTEPRO [Concomitant]
     Dosage: TWO PUFFS PER NOSTR TWO TIMES A DAY, AS REQUIRED
  6. BENTYL [Concomitant]
     Route: 048
  7. CYMBALTA [Concomitant]
     Route: 048
  8. CYMBALTA [Concomitant]
     Dosage: 20 MG FOR THREE DAYS
     Route: 048
  9. CYMBALTA [Concomitant]
     Route: 048
  10. NEBULIZER WITH TUBING [Concomitant]
  11. ALBUTEROL SULFATE [Concomitant]
     Dosage: 1.25 MG/3M USE WITH NEBULIZER Q4H AS REQUIRED
  12. ZOCOR [Concomitant]
     Route: 048
  13. XANAX [Concomitant]
     Indication: PANIC ATTACK
     Dosage: 0.5 TO 1 TAB Q6H AS REQUIRED
     Route: 048
  14. PROVENTIL-HFA [Concomitant]
     Dosage: 108 MCG/AC TWO PUFFS FOUR TIMES, AS REQUIRED
  15. LOTENSIN [Concomitant]
  16. NASACORT AQ [Concomitant]
     Dosage: 55 MCG/ACT 1-2 SPRAYS BID
  17. LASIX [Concomitant]
     Dosage: 2 BID
     Route: 048
  18. LEVOXYL [Concomitant]
  19. TRIAMTERENE/HYDROCHL [Concomitant]
     Dosage: 37.5-25 DAILY
     Route: 048
  20. CELEBREX [Concomitant]
  21. ATENOLOL [Concomitant]
     Route: 048
  22. PRILOSEC [Concomitant]
     Route: 048
  23. MULTIVITAMIN [Concomitant]
  24. RESTASIS [Concomitant]
     Dosage: 1 DROP IN EACH EYE
  25. LANCETS [Concomitant]
  26. FLONASE [Concomitant]
     Dosage: 50 MCG/ACT TWO PUFFS PER NOSTRIL DAILY
  27. LOPERAMIDE HCL [Concomitant]

REACTIONS (2)
  - DYSPNOEA [None]
  - WHEEZING [None]
